FAERS Safety Report 8632830 (Version 3)
Quarter: 2012Q4

REPORT INFORMATION
  Report Type: 
  Country: CA (occurrence: CA)
  Receive Date: 20120625
  Receipt Date: 20121026
  Transmission Date: 20130627
  Serious: Yes (Life-Threatening, Hospitalization, Other)
  Sender: FDA-Public Use
  Company Number: CA-INCYTE CORPORATION-2012IN001072

PATIENT
  Age: 77 Year
  Sex: Female
  Weight: 57.3 kg

DRUGS (12)
  1. INC424 [Suspect]
     Indication: MYELOFIBROSIS
     Dosage: 20 mg, bid
     Route: 048
     Dates: start: 20120604, end: 20120608
  2. CELEBREX [Concomitant]
     Dosage: UNK
     Dates: end: 201206
  3. RISEDRONATE SODIUM [Concomitant]
     Dosage: UNK
     Dates: end: 201206
  4. ATENOLOL [Concomitant]
     Dosage: UNK
     Dates: end: 201206
  5. METOCLOPRAMIDE [Concomitant]
     Dosage: UNK
     Dates: start: 20120509, end: 201206
  6. ASPIRIN [Concomitant]
     Dosage: UNK
     Dates: end: 201206
  7. LANSOPRAZOLE [Concomitant]
     Dosage: UNK
     Dates: end: 201206
  8. DILAUDID [Concomitant]
     Dosage: UNK
     Dates: end: 201206
  9. NEURONTIN [Concomitant]
     Dosage: UNK
     Dates: end: 201206
  10. CHLORTHALIDONE [Concomitant]
  11. ELAVIL [Concomitant]
  12. TETRACYCLINE [Concomitant]

REACTIONS (2)
  - Tumour lysis syndrome [Recovered/Resolved]
  - Pneumonia [Recovered/Resolved]
